FAERS Safety Report 26215235 (Version 1)
Quarter: 2025Q4

REPORT INFORMATION
  Report Type: Spontaneous
  Country: US (occurrence: US)
  Receive Date: 20251230
  Receipt Date: 20251230
  Transmission Date: 20260118
  Serious: Yes (Hospitalization, Other)
  Sender: BOEHRINGER INGELHEIM
  Company Number: US-Komodo Health-a23aa00000CsvIXAAZ

PATIENT
  Sex: Female

DRUGS (1)
  1. STIOLTO RESPIMAT [Suspect]
     Active Substance: OLODATEROL HYDROCHLORIDE\TIOTROPIUM BROMIDE MONOHYDRATE
     Indication: Product used for unknown indication
     Dosage: 2 PUFFS

REACTIONS (6)
  - Oxygen saturation decreased [Unknown]
  - Blood sodium decreased [Unknown]
  - Headache [Unknown]
  - Device issue [Unknown]
  - Dyspnoea [Unknown]
  - Intentional product use issue [Unknown]
